FAERS Safety Report 6183951-X (Version None)
Quarter: 2009Q2

REPORT INFORMATION
  Report Type: 
  Country: None (occurrence: None)
  Receive Date: 20090508
  Receipt Date: 20090430
  Transmission Date: 20091009
  Serious: Yes (Hospitalization, Other)
  Sender: FDA-Public Use
  Company Number: US-B.I. PHARMACEUTICALS,INC./RIDGEFIELD-2009-BP-04558BP

PATIENT
  Sex: Female

DRUGS (7)
  1. ZANTAC 150 [Suspect]
     Indication: GASTROOESOPHAGEAL REFLUX DISEASE
     Dosage: 150MG
     Route: 048
     Dates: start: 20081101, end: 20090301
  2. ASPIRIN [Concomitant]
     Indication: ATRIAL FIBRILLATION
  3. THYROID TAB [Concomitant]
     Indication: THYROID HORMONE REPLACEMENT THERAPY
  4. THYROID TAB [Concomitant]
  5. PACERONE [Concomitant]
  6. TOPROL-XL [Concomitant]
  7. BENADRYL [Concomitant]

REACTIONS (3)
  - COLITIS COLLAGENOUS [None]
  - DIARRHOEA [None]
  - ELECTROLYTE DEPLETION [None]
